FAERS Safety Report 21039658 (Version 2)
Quarter: 2022Q3

REPORT INFORMATION
  Report Type: Spontaneous
  Country: US (occurrence: US)
  Receive Date: 20220704
  Receipt Date: 20220726
  Transmission Date: 20221026
  Serious: No
  Sender: FDA-Public Use
  Company Number: US-Calliditas-2022CAL00163

PATIENT
  Sex: Female

DRUGS (11)
  1. TARPEYO [Suspect]
     Active Substance: BUDESONIDE
     Indication: Haematuria
     Dosage: 8 MG (4 MG CAPSULES) ONCE DAILY
     Route: 048
     Dates: start: 20220616
  2. CELLCEPT [Concomitant]
     Active Substance: MYCOPHENOLATE MOFETIL
     Dosage: 500MG IN MORNING
  3. CELLCEPT [Concomitant]
     Active Substance: MYCOPHENOLATE MOFETIL
     Dosage: 1000MG EVENING
  4. PROGRAF [Concomitant]
     Active Substance: TACROLIMUS
     Dosage: 3MG IN MORNING
  5. PROGRAF [Concomitant]
     Active Substance: TACROLIMUS
     Dosage: 4MG IN EVENING
  6. LIPITOR [Concomitant]
     Active Substance: ATORVASTATIN CALCIUM
  7. COZAAR [Concomitant]
     Active Substance: LOSARTAN POTASSIUM
     Dosage: COZAAR 50MG BID
  8. FISH OIL [Concomitant]
     Active Substance: FISH OIL
     Dosage: BID
  9. VITAMINS [Concomitant]
     Active Substance: VITAMINS
     Dosage: QD
  10. Vitrical [Concomitant]
     Dosage: QD
  11. WARFARIN SODIUM [Concomitant]
     Active Substance: WARFARIN SODIUM

REACTIONS (3)
  - Product residue present [Recovered/Resolved]
  - Intentional underdose [Unknown]
  - Inappropriate schedule of product administration [Unknown]

NARRATIVE: CASE EVENT DATE: 20220601
